FAERS Safety Report 15223436 (Version 2)
Quarter: 2018Q3

REPORT INFORMATION
  Report Type: Report from Study
  Country: None (occurrence: US)
  Receive Date: 20180731
  Receipt Date: 20180831
  Transmission Date: 20181010
  Serious: Yes (Hospitalization, Other)
  Sender: FDA-Public Use
  Company Number: US-ABBVIE-18K-163-2431875-00

PATIENT
  Age: 43 Year
  Sex: Female

DRUGS (2)
  1. HUMIRA [Suspect]
     Active Substance: ADALIMUMAB
     Indication: RHEUMATOID ARTHRITIS
  2. HUMIRA [Suspect]
     Active Substance: ADALIMUMAB
     Indication: CROHN^S DISEASE
     Route: 058
     Dates: start: 2016

REACTIONS (12)
  - Post procedural haemorrhage [Recovered/Resolved]
  - Post procedural complication [Unknown]
  - Uterine mass [Unknown]
  - Uterine malposition [Unknown]
  - Overdose [Unknown]
  - Secondary hypertension [Recovered/Resolved]
  - Headache [Recovered/Resolved]
  - Gastrointestinal fistula [Unknown]
  - Post procedural haematoma [Unknown]
  - Endometriosis [Unknown]
  - Vaginal discharge [Unknown]
  - Acute kidney injury [Recovered/Resolved]

NARRATIVE: CASE EVENT DATE: 201804
